FAERS Safety Report 15690776 (Version 1)
Quarter: 2018Q4

REPORT INFORMATION
  Report Type: Spontaneous
  Country: US (occurrence: US)
  Receive Date: 20181205
  Receipt Date: 20181205
  Transmission Date: 20190205
  Serious: Yes (Other)
  Sender: FDA-Public Use
  Company Number: US-THERAVANCE-2018-000060

PATIENT
  Sex: Female

DRUGS (1)
  1. VIBATIV [Suspect]
     Active Substance: TELAVANCIN HYDROCHLORIDE
     Indication: ABDOMINAL WALL ABSCESS

REACTIONS (3)
  - Off label use [None]
  - Myocardial infarction [Unknown]
  - Acute kidney injury [Unknown]
